FAERS Safety Report 5875165-5 (Version None)
Quarter: 2008Q3

REPORT INFORMATION
  Report Type: 
  Country: None (occurrence: None)
  Receive Date: 20080909
  Receipt Date: 20080829
  Transmission Date: 20090109
  Serious: Yes (Hospitalization)
  Sender: FDA-Public Use
  Company Number: DE-JNJFOC-20061105376

PATIENT
  Sex: Female
  Weight: 51 kg

DRUGS (6)
  1. INFLIXIMAB [Suspect]
     Dosage: 2 HOUR INFUSION
     Route: 042
  2. INFLIXIMAB [Suspect]
     Dosage: 2 HOUR INFUSION
     Route: 042
  3. INFLIXIMAB [Suspect]
     Dosage: 2 HOUR INFUSION
     Route: 042
  4. INFLIXIMAB [Suspect]
     Dosage: 2 HOUR INFUSION
     Route: 042
  5. INFLIXIMAB [Suspect]
     Dosage: 2 HOUR INFUSION
     Route: 042
  6. INFLIXIMAB [Suspect]
     Indication: CROHN'S DISEASE
     Dosage: 2 HOUR INFUSION
     Route: 042

REACTIONS (1)
  - VISUAL IMPAIRMENT [None]
